FAERS Safety Report 25112300 (Version 1)
Quarter: 2025Q1

REPORT INFORMATION
  Report Type: Spontaneous
  Country: US (occurrence: US)
  Receive Date: 20250324
  Receipt Date: 20250324
  Transmission Date: 20250409
  Serious: No
  Sender: UCB
  Company Number: US-UCBSA-2024025897

PATIENT
  Sex: Male

DRUGS (4)
  1. BRIVIACT [Suspect]
     Active Substance: BRIVARACETAM
     Indication: Epilepsy
     Dates: start: 20240320
  2. BRIVIACT [Suspect]
     Active Substance: BRIVARACETAM
  3. BRIVIACT [Suspect]
     Active Substance: BRIVARACETAM
  4. BRIVIACT [Suspect]
     Active Substance: BRIVARACETAM

REACTIONS (1)
  - Product packaging quantity issue [Unknown]

NARRATIVE: CASE EVENT DATE: 20240101
